FAERS Safety Report 6631869-8 (Version None)
Quarter: 2010Q1

REPORT INFORMATION
  Report Type: 
  Country: None (occurrence: None)
  Receive Date: 20100312
  Receipt Date: 20100304
  Transmission Date: 20100710
  Serious: Yes (Death)
  Sender: FDA-Public Use
  Company Number: US-BAXTER-2010BH000142

PATIENT
  Sex: Female

DRUGS (16)
  1. HEPARIN SODIUM INJECTION [Suspect]
     Indication: CATHETERISATION CARDIAC
     Route: 042
     Dates: start: 20071228, end: 20071228
  2. HEPARIN SODIUM INJECTION [Suspect]
     Route: 042
     Dates: start: 20071231, end: 20071231
  3. HEPARIN SODIUM INJECTION [Suspect]
     Route: 042
     Dates: start: 20080103, end: 20080103
  4. HEPARIN SODIUM INJECTION [Suspect]
     Route: 042
     Dates: start: 20080114, end: 20080114
  5. HEPARIN SODIUM INJECTION [Suspect]
     Route: 042
     Dates: start: 20080115, end: 20080115
  6. HEPARIN SODIUM INJECTION [Suspect]
     Route: 042
     Dates: start: 20080116, end: 20080116
  7. HEPARIN SODIUM INJECTION [Suspect]
     Route: 042
     Dates: start: 20080117, end: 20080117
  8. HEPARIN SODIUM INJECTION [Suspect]
     Route: 042
     Dates: start: 20080118, end: 20080118
  9. HEPARIN SODIUM INJECTION [Suspect]
     Route: 042
     Dates: start: 20080119, end: 20080119
  10. HEPARIN SODIUM INJECTION [Suspect]
     Route: 042
     Dates: start: 20080121, end: 20080121
  11. HEPARIN SODIUM INJECTION [Suspect]
     Route: 042
     Dates: start: 20080122, end: 20080122
  12. SOTALOL [Concomitant]
     Indication: DRUG USE FOR UNKNOWN INDICATION
     Route: 065
  13. FUROSEMIDE [Concomitant]
     Indication: DRUG USE FOR UNKNOWN INDICATION
     Route: 065
  14. ECOTRIN [Concomitant]
     Indication: DRUG USE FOR UNKNOWN INDICATION
     Route: 065
  15. KLOR-CON [Concomitant]
     Indication: DRUG USE FOR UNKNOWN INDICATION
     Route: 065
  16. MULTI-VITAMINS [Concomitant]
     Indication: DRUG USE FOR UNKNOWN INDICATION
     Route: 065

REACTIONS (12)
  - ABDOMINAL DISCOMFORT [None]
  - ABDOMINAL PAIN [None]
  - CHEST PAIN [None]
  - DIARRHOEA [None]
  - DYSPNOEA [None]
  - GASTROINTESTINAL NECROSIS [None]
  - HAEMORRHAGE [None]
  - HYPOTENSION [None]
  - INTESTINAL ISCHAEMIA [None]
  - RENAL FAILURE [None]
  - RESPIRATORY DISTRESS [None]
  - VOMITING [None]
